FAERS Safety Report 9612677 (Version 2)
Quarter: 2014Q1

REPORT INFORMATION
  Report Type: Spontaneous
  Country: US (occurrence: None)
  Receive Date: 20131008
  Receipt Date: 20140328
  Transmission Date: 20141002
  Serious: Yes (Hospitalization)
  Sender: FDA-Public Use
  Company Number: 2013-US-001438

PATIENT
  Age: 16 Year
  Sex: Male

DRUGS (1)
  1. XYREM [Suspect]
     Indication: NARCOLEPSY
     Dosage: 2.25 G,  BID,  ORAL
     Route: 048
     Dates: start: 20121129, end: 2012

REACTIONS (2)
  - Knee operation [None]
  - Sports injury [None]
